FAERS Safety Report 7807051-5 (Version None)
Quarter: 2011Q4

REPORT INFORMATION
  Report Type: 
  Country: None (occurrence: None)
  Receive Date: 20111011
  Receipt Date: 20110927
  Transmission Date: 20120403
  Serious: No
  Sender: FDA-Public Use
  Company Number: US-B.I. PHARMACEUTICALS,INC./RIDGEFIELD-2011-BP-20045BP

PATIENT
  Sex: Female

DRUGS (5)
  1. DIGOXIN [Concomitant]
  2. SPIRIVA [Suspect]
     Indication: CHRONIC OBSTRUCTIVE PULMONARY DISEASE
     Dosage: 18 MCG
     Route: 055
     Dates: start: 20100901
  3. LISINOPRIL [Concomitant]
  4. PLAVIX [Concomitant]
  5. NITROGLYCERIN [Concomitant]

REACTIONS (1)
  - CHOKING SENSATION [None]
